FAERS Safety Report 21793582 (Version 1)
Quarter: 2022Q4

REPORT INFORMATION
  Report Type: Spontaneous
  Country: US (occurrence: US)
  Receive Date: 20221229
  Receipt Date: 20221229
  Transmission Date: 20230113
  Serious: No
  Sender: FDA-Public Use
  Company Number: US-MICRO LABS LIMITED-ML2022-06288

PATIENT
  Age: 77 Year
  Sex: Female
  Weight: 54.4 kg

DRUGS (3)
  1. DORZOLAMIDE HYDROCHLORIDE\TIMOLOL MALEATE [Suspect]
     Active Substance: DORZOLAMIDE HYDROCHLORIDE\TIMOLOL MALEATE
     Indication: Glaucoma
     Dosage: ONE DROP IN EACH EYE
     Route: 047
  2. ATORVASTATIN [Concomitant]
     Active Substance: ATORVASTATIN
  3. LUMIGAN [Concomitant]
     Active Substance: BIMATOPROST

REACTIONS (1)
  - Incorrect dosage administered [Unknown]
